FAERS Safety Report 21763726 (Version 2)
Quarter: 2022Q4

REPORT INFORMATION
  Report Type: Spontaneous
  Country: IT (occurrence: IT)
  Receive Date: 20221222
  Receipt Date: 20221230
  Transmission Date: 20230113
  Serious: Yes (Other)
  Sender: FDA-Public Use
  Company Number: IT-NOVOPROD-1003606

PATIENT
  Sex: Male

DRUGS (4)
  1. LEVEMIR [Suspect]
     Active Substance: INSULIN DETEMIR
     Indication: Glucose-6-phosphate dehydrogenase deficiency
     Dosage: 34 IU (RESTARTED)
  2. LEVEMIR [Suspect]
     Active Substance: INSULIN DETEMIR
     Indication: Type 2 diabetes mellitus
     Dosage: UNK
  3. NOVORAPID [Suspect]
     Active Substance: INSULIN ASPART
     Indication: Type 2 diabetes mellitus
     Dosage: 12 IU X 3
  4. NOVORAPID [Suspect]
     Active Substance: INSULIN ASPART
     Indication: Glucose-6-phosphate dehydrogenase deficiency

REACTIONS (3)
  - Metabolic acidosis [Unknown]
  - Acute kidney injury [Unknown]
  - Diabetes mellitus inadequate control [Recovered/Resolved]
